FAERS Safety Report 8785533 (Version 1)
Quarter: 2012Q4

REPORT INFORMATION
  Report Type: 
  Country: US (occurrence: US)
  Receive Date: 20120914
  Receipt Date: 20120914
  Transmission Date: 20130627
  Serious: No
  Sender: FDA-Public Use
  Company Number: US-PFIZER INC-2012226670

PATIENT
  Age: 54 Year
  Sex: Female
  Weight: 112 kg

DRUGS (2)
  1. LYRICA [Suspect]
     Indication: FIBROMYALGIA
     Dosage: 100 mg, 3x/day
     Route: 048
     Dates: start: 2007, end: 201205
  2. LYRICA [Suspect]
     Dosage: 100 mg, 3x/day
     Dates: start: 201206

REACTIONS (6)
  - Drug withdrawal syndrome [Recovered/Resolved]
  - Cold sweat [Recovered/Resolved]
  - Nausea [Recovered/Resolved]
  - Headache [Recovered/Resolved]
  - Insomnia [Recovered/Resolved]
  - Depressed mood [Recovered/Resolved]
